FAERS Safety Report 23798767 (Version 1)
Quarter: 2024Q2

REPORT INFORMATION
  Report Type: Spontaneous
  Country: US (occurrence: None)
  Receive Date: 20240427
  Receipt Date: 20240427
  Transmission Date: 20240716
  Serious: Yes (Disabling, Other)
  Sender: FDA-Public Use
  Company Number: None

PATIENT
  Age: 33 Year
  Sex: Male
  Weight: 94.5 kg

DRUGS (1)
  1. ROGAINE [Suspect]
     Active Substance: MINOXIDIL
     Indication: Alopecia
     Dates: start: 20180601, end: 20240201

REACTIONS (8)
  - Penile size reduced [None]
  - Genital hypoaesthesia [None]
  - Loss of libido [None]
  - Anhedonia [None]
  - Constipation [None]
  - Gynaecomastia [None]
  - Hypotrichosis [None]
  - Muscle atrophy [None]

NARRATIVE: CASE EVENT DATE: 20190101
